FAERS Safety Report 19482740 (Version 5)
Quarter: 2021Q3

REPORT INFORMATION
  Report Type: Spontaneous
  Country: FR (occurrence: FR)
  Receive Date: 20210701
  Receipt Date: 20210831
  Transmission Date: 20211014
  Serious: Yes (Hospitalization, Other)
  Sender: FDA-Public Use
  Company Number: FR-009507513-2106FRA007755

PATIENT
  Age: 56 Year
  Sex: Male

DRUGS (2)
  1. ISENTRESS [Suspect]
     Active Substance: RALTEGRAVIR POTASSIUM
     Dosage: 8 SACHET (4?0?4) OF 100 MG DAILY
     Route: 048
     Dates: start: 2021
  2. ISENTRESS [Suspect]
     Active Substance: RALTEGRAVIR POTASSIUM
     Dosage: 400 MG X2 / DAY
     Route: 048
     Dates: start: 2014, end: 2021

REACTIONS (3)
  - Korsakoff^s syndrome [Unknown]
  - Tongue neoplasm malignant stage unspecified [Unknown]
  - Incorrect product formulation administered [Unknown]

NARRATIVE: CASE EVENT DATE: 20210107
